FAERS Safety Report 20074716 (Version 4)
Quarter: 2024Q1

REPORT INFORMATION
  Report Type: Spontaneous
  Country: US (occurrence: US)
  Receive Date: 20211116
  Receipt Date: 20240123
  Transmission Date: 20240410
  Serious: No
  Sender: FDA-Public Use
  Company Number: US-BIOGEN-2021BI01065532

PATIENT
  Sex: Female

DRUGS (1)
  1. TYSABRI [Suspect]
     Active Substance: NATALIZUMAB
     Indication: Multiple sclerosis
     Route: 050
     Dates: start: 20210810

REACTIONS (24)
  - Inappropriate schedule of product administration [Not Recovered/Not Resolved]
  - Visual impairment [Not Recovered/Not Resolved]
  - Mental impairment [Not Recovered/Not Resolved]
  - Feeling abnormal [Unknown]
  - Tooth loss [Unknown]
  - Drug intolerance [Unknown]
  - Alopecia [Unknown]
  - Eye disorder [Unknown]
  - Rhinitis [Unknown]
  - Pharyngitis [Unknown]
  - Abdominal pain upper [Unknown]
  - Memory impairment [Unknown]
  - Fall [Recovered/Resolved]
  - Fatigue [Unknown]
  - Depression [Unknown]
  - Anxiety [Unknown]
  - Headache [Unknown]
  - Urinary tract infection [Unknown]
  - Arthralgia [Unknown]
  - Pneumonia [Unknown]
  - Pain in extremity [Unknown]
  - Diarrhoea [Unknown]
  - Rash [Unknown]
  - Nausea [Unknown]

NARRATIVE: CASE EVENT DATE: 20210101
